FAERS Safety Report 17029847 (Version 2)
Quarter: 2020Q2

REPORT INFORMATION
  Report Type: Report from Study
  Country: DE (occurrence: DE)
  Receive Date: 20191114
  Receipt Date: 20200626
  Transmission Date: 20200713
  Serious: Yes (Other)
  Sender: FDA-Public Use
  Company Number: PHHY2015DE004892

PATIENT
  Sex: Female

DRUGS (1)
  1. GILENYA [Suspect]
     Active Substance: FINGOLIMOD HYDROCHLORIDE
     Indication: MULTIPLE SCLEROSIS
     Dosage: UNK, QD
     Route: 048
     Dates: start: 20131010

REACTIONS (11)
  - Lymphocyte count decreased [Unknown]
  - Vertigo [Unknown]
  - Hepatic enzyme increased [Unknown]
  - Eczema [Recovered/Resolved]
  - Haemoglobin decreased [Unknown]
  - Gamma-glutamyltransferase increased [Unknown]
  - Vitamin D deficiency [Unknown]
  - Influenza [Recovered/Resolved]
  - Burning sensation [Recovered/Resolved]
  - White blood cell count decreased [Unknown]
  - Paraesthesia [Recovered/Resolved]

NARRATIVE: CASE EVENT DATE: 20140213
